FAERS Safety Report 4693851-X (Version None)
Quarter: 2005Q2

REPORT INFORMATION
  Report Type: 
  Country: None (occurrence: None)
  Receive Date: 20050615
  Receipt Date: 20050610
  Transmission Date: 20051028
  Serious: Yes (Hospitalization)
  Sender: FDA-Public Use
  Company Number: S05-USA-02982-01

PATIENT
  Age: 28 Year
  Sex: Female

DRUGS (10)
  1. LEXAPRO [Suspect]
     Indication: ANXIETY
     Dosage: 30 MG QD PO
     Route: 048
     Dates: start: 20020101, end: 20050323
  2. LEXAPRO [Suspect]
     Indication: DEPRESSION
     Dosage: 30 MG QD PO
     Route: 048
     Dates: start: 20020101, end: 20050323
  3. LEXAPRO [Suspect]
     Indication: ANXIETY
     Dosage: 10 MG QD PO
     Route: 048
     Dates: start: 20050324, end: 20050101
  4. LEXAPRO [Suspect]
     Indication: DEPRESSION
     Dosage: 10 MG QD PO
     Route: 048
     Dates: start: 20050324, end: 20050101
  5. LEXAPRO [Suspect]
     Indication: ANXIETY
     Dates: start: 20050101, end: 20050101
  6. LEXAPRO [Suspect]
     Indication: DEPRESSION
     Dates: start: 20050101, end: 20050101
  7. LEXAPRO [Suspect]
     Indication: ANXIETY
     Dosage: 40 MG QD PO
     Route: 048
     Dates: start: 20050101
  8. LEXAPRO [Suspect]
     Indication: DEPRESSION
     Dosage: 40 MG QD PO
     Route: 048
     Dates: start: 20050101
  9. WELLBUTRIN [Suspect]
     Indication: ANXIETY
     Dates: start: 20040301, end: 20050324
  10. WELLBUTRIN [Suspect]
     Indication: DEPRESSION
     Dates: start: 20040301, end: 20050324

REACTIONS (7)
  - CONVULSION [None]
  - DIZZINESS [None]
  - DYSKINESIA [None]
  - FALL [None]
  - FATIGUE [None]
  - HEAD INJURY [None]
  - HEADACHE [None]
